FAERS Safety Report 14958447 (Version 1)
Quarter: 2018Q2

REPORT INFORMATION
  Report Type: Spontaneous
  Country: NL (occurrence: NL)
  Receive Date: 20180531
  Receipt Date: 20180531
  Transmission Date: 20180711
  Serious: Yes (Hospitalization, Other)
  Sender: FDA-Public Use
  Company Number: NL-AUROBINDO-AUR-APL-2018-028977

PATIENT
  Age: 18 Year
  Sex: Female

DRUGS (5)
  1. AMBISOME [Suspect]
     Active Substance: AMPHOTERICIN B
     Dosage: UNK ()
     Route: 061
  2. AMBISOME [Suspect]
     Active Substance: AMPHOTERICIN B
     Dosage: 7 MG/KG, UNK
     Route: 042
  3. AMOXICILLIN+CLAVULANIC ACID [Suspect]
     Active Substance: AMOXICILLIN\CLAVULANIC ACID
     Indication: MUCORMYCOSIS
     Dosage: ()
     Route: 065
  4. AMBISOME [Suspect]
     Active Substance: AMPHOTERICIN B
     Indication: MUCORMYCOSIS
     Dosage: 10 MG, UNK
     Route: 042
  5. MICAFUNGIN [Suspect]
     Active Substance: MICAFUNGIN
     Indication: MUCORMYCOSIS
     Dosage: 100 MG/KG, UNK
     Route: 065

REACTIONS (3)
  - Drug ineffective [Recovered/Resolved]
  - Drug ineffective for unapproved indication [Recovered/Resolved]
  - Off label use [Recovered/Resolved]
